FAERS Safety Report 9641739 (Version 1)
Quarter: 2013Q4

REPORT INFORMATION
  Report Type: Spontaneous
  Country: GB (occurrence: None)
  Receive Date: 20131021
  Receipt Date: 20131021
  Transmission Date: 20140711
  Serious: Yes (Other)
  Sender: FDA-Public Use
  Company Number: GB-SEPTODONT-201101570

PATIENT
  Sex: Female

DRUGS (1)
  1. SEPTANEST [Suspect]
     Indication: LOCAL ANAESTHESIA
     Dosage: DENTAL
     Dates: start: 20111129, end: 20111129

REACTIONS (5)
  - Device breakage [None]
  - Mouth injury [None]
  - Foreign body [None]
  - Mouth injury [None]
  - Accidental exposure to product [None]
